FAERS Safety Report 10257398 (Version 1)
Quarter: 2014Q2

REPORT INFORMATION
  Report Type: Spontaneous
  Country: JP (occurrence: JP)
  Receive Date: 20140625
  Receipt Date: 20140625
  Transmission Date: 20141212
  Serious: Yes (Other)
  Sender: FDA-Public Use
  Company Number: JP-JNJFOC-20140611888

PATIENT
  Sex: Male

DRUGS (16)
  1. XARELTO [Suspect]
     Indication: PRODUCT USED FOR UNKNOWN INDICATION
     Route: 048
  2. FAMOTIDIN [Concomitant]
     Route: 065
  3. ARTIST [Concomitant]
     Route: 048
  4. ACTOS [Concomitant]
     Route: 048
  5. AMLODIPINE [Concomitant]
     Route: 048
  6. DOXAZOSIN [Concomitant]
     Route: 048
  7. DIOVAN [Concomitant]
     Route: 048
  8. FRANDOL [Concomitant]
     Route: 065
  9. FERROMIA [Concomitant]
     Route: 048
  10. GLUCOBAY [Concomitant]
     Route: 048
  11. JANUVIA [Concomitant]
     Route: 048
  12. LIPITOR [Concomitant]
     Route: 048
  13. SERMION [Concomitant]
     Route: 048
  14. NELBIS [Concomitant]
     Route: 048
  15. LANIRAPID [Concomitant]
     Route: 048
  16. LUPRAC [Concomitant]
     Route: 048

REACTIONS (1)
  - Cerebral infarction [Unknown]
